FAERS Safety Report 10083706 (Version 2)
Quarter: 2014Q2

REPORT INFORMATION
  Report Type: Spontaneous
  Country: US (occurrence: US)
  Receive Date: 20140417
  Receipt Date: 20140513
  Transmission Date: 20141212
  Serious: No
  Sender: FDA-Public Use
  Company Number: US-PFIZER INC-2014107727

PATIENT
  Age: 49 Year
  Sex: Female
  Weight: 86.17 kg

DRUGS (6)
  1. LYRICA [Suspect]
     Indication: FIBROMYALGIA
     Dosage: 100 MG IN THE MORNING AND 150MG IN THE EVENING, 2X/DAY
     Route: 048
     Dates: end: 20140411
  2. LYRICA [Suspect]
     Dosage: 150 MG, 1X/DAY (50 MG 1 CAP AT BEDTIME IN ADDITION TO 100 MG DOSE FOR TOTAL OF 150 MG AT BEDTIME]
     Route: 048
  3. DIOVAN (VALSARTAN) [Concomitant]
     Indication: HYPERTENSION
     Dosage: 320 MG, DAILY
  4. SINGULAIR [Concomitant]
     Indication: ASTHMA
     Dosage: 10 MG, DAILY
  5. METOPROLOL [Concomitant]
     Indication: HYPERTENSION
     Dosage: 50 MG, 2X/DAY
  6. LOVASTATIN [Concomitant]
     Indication: BLOOD CHOLESTEROL ABNORMAL
     Dosage: 10 MG, DAILY

REACTIONS (1)
  - Pain [Unknown]
